FAERS Safety Report 4753342-4 (Version None)
Quarter: 2005Q3

REPORT INFORMATION
  Report Type: 
  Country: None (occurrence: None)
  Receive Date: 20050826
  Receipt Date: 20050817
  Transmission Date: 20060218
  Serious: Yes (Other)
  Sender: FDA-Public Use
  Company Number: US-JNJFOC-20050604680

PATIENT
  Sex: Female
  Weight: 116.12 kg

DRUGS (22)
  1. REMICADE [Suspect]
     Route: 042
  2. REMICADE [Suspect]
     Indication: CROHN'S DISEASE
     Route: 042
  3. SOLU-CORTEF [Concomitant]
     Route: 042
  4. 6-MP [Concomitant]
     Indication: CROHN'S DISEASE
  5. PRILOSEC [Concomitant]
  6. PREDNISONE TAB [Concomitant]
     Indication: CROHN'S DISEASE
  7. ORAL CONTRACEPTIVE [Concomitant]
  8. CANASA [Concomitant]
     Indication: CROHN'S DISEASE
  9. MIDOL [Concomitant]
  10. MIDOL [Concomitant]
  11. MIDOL [Concomitant]
  12. MIDOL [Concomitant]
  13. ALEVE [Concomitant]
  14. TYLENOL [Concomitant]
  15. MULTI-VITAMIN [Concomitant]
  16. MULTI-VITAMIN [Concomitant]
  17. MULTI-VITAMIN [Concomitant]
  18. MULTI-VITAMIN [Concomitant]
  19. MULTI-VITAMIN [Concomitant]
  20. MULTI-VITAMIN [Concomitant]
  21. MULTI-VITAMIN [Concomitant]
  22. MULTI-VITAMIN [Concomitant]

REACTIONS (5)
  - CHEST DISCOMFORT [None]
  - DYSPNOEA [None]
  - FLUSHING [None]
  - INFUSION RELATED REACTION [None]
  - OXYGEN SATURATION DECREASED [None]
